FAERS Safety Report 7399514-4 (Version None)
Quarter: 2011Q2

REPORT INFORMATION
  Report Type: 
  Country: None (occurrence: None)
  Receive Date: 20110407
  Receipt Date: 20110328
  Transmission Date: 20111010
  Serious: Yes (Other)
  Sender: FDA-Public Use
  Company Number: US-ELI_LILLY_AND_COMPANY-US201007004189

PATIENT
  Sex: Female

DRUGS (3)
  1. PREDNISONE [Concomitant]
  2. FORTEO [Suspect]
     Dosage: 20 UG, DAILY (1/D)
  3. FORTEO [Suspect]
     Indication: OSTEOPOROSIS
     Dosage: 20 UG, DAILY (1/D)

REACTIONS (4)
  - COLON OPERATION [None]
  - ALOPECIA [None]
  - HAIR DISORDER [None]
  - ABDOMINAL DISCOMFORT [None]
